FAERS Safety Report 9775757 (Version 2)
Quarter: 2014Q1

REPORT INFORMATION
  Report Type: Report from Study
  Country: US (occurrence: US)
  Receive Date: 20131220
  Receipt Date: 20140130
  Transmission Date: 20141002
  Serious: Yes (Other)
  Sender: FDA-Public Use
  Company Number: US-009507513-1312USA005854

PATIENT
  Sex: 0

DRUGS (8)
  1. REBETOL [Suspect]
     Indication: CHRONIC HEPATITIS
     Dosage: 600 MG, QD, FOR 12 WEEKS
     Route: 048
  2. REBETOL [Suspect]
     Dosage: 600 MG, QD, FOLLOWED BY 36 WEEKS
     Route: 048
  3. PEGINTERFERON ALFA-2A [Suspect]
     Indication: CHRONIC HEPATITIS C
     Dosage: 180 MICROGRAM, QW, FOR 12 WEEKS
  4. PEGINTERFERON ALFA-2A [Suspect]
     Dosage: 180 MICROGRAM, QW, FOLLOWE BY 36 WEEKS
  5. TELAPREVIR [Suspect]
     Indication: CHRONIC HEPATITIS C
     Dosage: 1125 MG, BID, FOR 12 WEEKS
     Route: 048
  6. CYCLOSPORINE [Concomitant]
     Dosage: UNK
  7. CYCLOSPORINE [Concomitant]
     Dosage: POST-INITIAL T =4-FOLD (MIN. DOSE, 25 MG)
  8. TACROLIMUS [Concomitant]
     Dosage: POST-INITIAL 10-FOLD (MIN. DOSE, 0.5)

REACTIONS (2)
  - Rhabdomyolysis [Unknown]
  - Renal failure [Unknown]
